FAERS Safety Report 4300473-9 (Version None)
Quarter: 2004Q1

REPORT INFORMATION
  Report Type: 
  Country: None (occurrence: None)
  Receive Date: 20040219
  Receipt Date: 20040219
  Transmission Date: 20041129
  Serious: Yes (Disabling)
  Sender: FDA-Public Use
  Company Number: None

PATIENT
  Age: 34 Year
  Sex: Female
  Weight: 85.2762 kg

DRUGS (1)
  1. TEGRETOL-XR [Suspect]
     Indication: CONVULSION
     Dosage: 100MG IN AM 200 MG IN PM

REACTIONS (5)
  - CONVULSION [None]
  - DIZZINESS [None]
  - DRUG LEVEL DECREASED [None]
  - PHARMACEUTICAL PRODUCT COMPLAINT [None]
  - STRABISMUS [None]
